FAERS Safety Report 4678380-1 (Version None)
Quarter: 2005Q2

REPORT INFORMATION
  Report Type: 
  Country: None (occurrence: None)
  Receive Date: 20050531
  Receipt Date: 20050531
  Transmission Date: 20051028
  Serious: Yes (Hospitalization)
  Sender: FDA-Public Use
  Company Number: None

PATIENT
  Age: 45 Year
  Sex: Female

DRUGS (5)
  1. NAPROSYN [Suspect]
     Indication: RHEUMATOID ARTHRITIS
     Dosage: 500 MG BID ORAL
     Route: 048
     Dates: start: 20050301, end: 20050225
  2. HUMIRA [Suspect]
     Indication: RHEUMATOID ARTHRITIS
     Dosage: 40 MG QO WEEK SUBCUTANEOUS
     Route: 058
     Dates: start: 20050301, end: 20050525
  3. PREDNISONE TAB [Concomitant]
  4. AMOXICILLIN [Concomitant]
  5. INSULIN [Concomitant]

REACTIONS (3)
  - HEADACHE [None]
  - MENINGITIS [None]
  - PHOTOPHOBIA [None]
